FAERS Safety Report 12134940 (Version 2)
Quarter: 2016Q1

REPORT INFORMATION
  Report Type: Spontaneous
  Country: PL (occurrence: PL)
  Receive Date: 20160301
  Receipt Date: 20160315
  Transmission Date: 20160526
  Serious: Yes (Other)
  Sender: FDA-Public Use
  Company Number: PL-BAXTER-2016BAX009603

PATIENT
  Sex: Female

DRUGS (1)
  1. ENDOXAN [Suspect]
     Active Substance: CYCLOPHOSPHAMIDE
     Indication: OVARIAN CANCER
     Route: 042

REACTIONS (2)
  - Exposure during pregnancy [Recovered/Resolved]
  - Treatment failure [Not Recovered/Not Resolved]
